FAERS Safety Report 11093814 (Version 1)
Quarter: 2015Q2

REPORT INFORMATION
  Report Type: Spontaneous
  Country: US (occurrence: None)
  Receive Date: 20150428
  Receipt Date: 20150428
  Transmission Date: 20150821
  Serious: Yes (Other)
  Sender: FDA-Public Use
  Company Number: PHEH2015US002408

PATIENT
  Age: 36 Year
  Sex: Male
  Weight: 97.1 kg

DRUGS (1)
  1. GILENYA [Suspect]
     Active Substance: FINGOLIMOD HYDROCHLORIDE
     Indication: PRODUCT USED FOR UNKNOWN INDICATION
     Route: 048
     Dates: start: 20150128

REACTIONS (2)
  - Sinus bradycardia [None]
  - Blood pressure increased [None]

NARRATIVE: CASE EVENT DATE: 20150128
